FAERS Safety Report 9203176 (Version 1)
Quarter: 2013Q2

REPORT INFORMATION
  Report Type: Spontaneous
  Country: DE (occurrence: DE)
  Receive Date: 20130402
  Receipt Date: 20130402
  Transmission Date: 20140414
  Serious: Yes (Death)
  Sender: FDA-Public Use
  Company Number: DE-AMGEN-DEUSP2013022432

PATIENT
  Age: 83 Year
  Sex: Female

DRUGS (3)
  1. ENBREL [Suspect]
     Indication: RHEUMATOID ARTHRITIS
     Dosage: 50 MG, WEEKLY
     Dates: start: 20101213, end: 20120901
  2. MTX                                /00113802/ [Concomitant]
     Dosage: 20 MG, UNK
  3. PREDNISOLON                        /00016201/ [Concomitant]
     Dosage: 9 MG, UNK

REACTIONS (1)
  - Marasmus [Fatal]
